FAERS Safety Report 12507267 (Version 2)
Quarter: 2019Q3

REPORT INFORMATION
  Report Type: Spontaneous
  Country: TH (occurrence: TH)
  Receive Date: 20160629
  Receipt Date: 20190816
  Transmission Date: 20191004
  Serious: Yes (Other)
  Sender: FDA-Public Use
  Company Number: TH-BAUSCH-BL-2016-015041

PATIENT
  Age: 59 Year
  Sex: Male

DRUGS (7)
  1. VINCRISTINE [Concomitant]
     Active Substance: VINCRISTINE
     Indication: DIFFUSE LARGE B-CELL LYMPHOMA
     Dosage: NEXT 5 COURSES OF CHEMOTHERAPY WERE CONTINUED
  2. CYCLOPHOSPHAMIDE. [Concomitant]
     Active Substance: CYCLOPHOSPHAMIDE
     Indication: DIFFUSE LARGE B-CELL LYMPHOMA
     Dosage: CYCLICAL
  3. DOXORUBICIN [Concomitant]
     Active Substance: DOXORUBICIN
     Dosage: NEXT 5 COURSES OF CHEMOTHERAPY WERE CONTINUED
  4. VINCRISTINE [Concomitant]
     Active Substance: VINCRISTINE
     Dosage: CYCLICAL
  5. PREDNISOLONE. [Suspect]
     Active Substance: PREDNISOLONE
     Indication: DIFFUSE LARGE B-CELL LYMPHOMA
     Dosage: CYCLICAL
     Route: 065
  6. DOXORUBICIN [Concomitant]
     Active Substance: DOXORUBICIN
     Indication: DIFFUSE LARGE B-CELL LYMPHOMA
     Dosage: CYCLICAL
  7. CYCLOPHOSPHAMIDE. [Concomitant]
     Active Substance: CYCLOPHOSPHAMIDE
     Dosage: ( NEXT 5 COURSES OF CHEMOTHERAPY WERE CONTINUED)

REACTIONS (1)
  - Autoimmune haemolytic anaemia [Recovered/Resolved]
